FAERS Safety Report 8331694-6 (Version None)
Quarter: 2012Q2

REPORT INFORMATION
  Report Type: 
  Country: None (occurrence: None)
  Receive Date: 20120502
  Receipt Date: 20120309
  Transmission Date: 20120825
  Serious: No
  Sender: FDA-Public Use
  Company Number: US-ASTRAZENECA-2012SE16851

PATIENT
  Sex: Female

DRUGS (3)
  1. BUDESONIDE [Suspect]
     Indication: DUODENITIS
     Route: 048
  2. METHOTREXATE [Concomitant]
     Indication: SYSTEMIC LUPUS ERYTHEMATOSUS
  3. PREDNISONE [Concomitant]
     Indication: RHEUMATOID ARTHRITIS

REACTIONS (3)
  - DRUG DOSE OMISSION [None]
  - GENERAL PHYSICAL HEALTH DETERIORATION [None]
  - OFF LABEL USE [None]
